FAERS Safety Report 9274666 (Version 1)
Quarter: 2013Q2

REPORT INFORMATION
  Report Type: Spontaneous
  Country: US (occurrence: None)
  Receive Date: 20130430
  Receipt Date: 20130430
  Transmission Date: 20140414
  Serious: Yes (Hospitalization)
  Sender: FDA-Public Use
  Company Number: None

PATIENT
  Age: 52 Year
  Sex: Male
  Weight: 61.4 kg

DRUGS (1)
  1. PROLASTIN-C [Suspect]
     Indication: ALPHA-1 ANTI-TRYPSIN DEFICIENCY
     Route: 042
     Dates: start: 201206, end: 201304

REACTIONS (6)
  - Chills [None]
  - Pain [None]
  - Nausea [None]
  - Body temperature decreased [None]
  - Dyspnoea [None]
  - Pneumonia [None]
